FAERS Safety Report 8767090 (Version 2)
Quarter: 2017Q4

REPORT INFORMATION
  Report Type: Report from Study
  Country: NL (occurrence: NL)
  Receive Date: 20120904
  Receipt Date: 20171127
  Transmission Date: 20180321
  Serious: Yes (Other)
  Sender: FDA-Public Use
  Company Number: NL-CELGENEUS-114-50794-12082615

PATIENT

DRUGS (1)
  1. VIDAZA [Suspect]
     Active Substance: AZACITIDINE
     Indication: ACUTE MYELOID LEUKAEMIA
     Route: 058

REACTIONS (12)
  - Gastrointestinal disorder [Unknown]
  - Bone marrow disorder [Unknown]
  - Nervous system disorder [Unknown]
  - Vomiting [Recovered/Resolved]
  - Nausea [Recovered/Resolved]
  - Lung disorder [Unknown]
  - Cardiac disorder [Unknown]
  - Pain [Unknown]
  - Procedural complication [Unknown]
  - Infection [Unknown]
  - Skin disorder [Unknown]
  - Renal disorder [Unknown]
